FAERS Safety Report 4756099-6 (Version None)
Quarter: 2005Q3

REPORT INFORMATION
  Report Type: 
  Country: None (occurrence: None)
  Receive Date: 20050829
  Receipt Date: 20050829
  Transmission Date: 20060218
  Serious: Yes (Hospitalization)
  Sender: FDA-Public Use
  Company Number: None

PATIENT
  Sex: Male
  Weight: 115.8 kg

DRUGS (1)
  1. IRESSA [Suspect]
     Indication: COLON CANCER
     Dosage: 500MG  QD  PO
     Route: 048
     Dates: start: 20050315, end: 20050510

REACTIONS (8)
  - ATRIAL FIBRILLATION [None]
  - CHEST PAIN [None]
  - DRUG DOSE OMISSION [None]
  - DYSPNOEA [None]
  - HEART RATE INCREASED [None]
  - NAUSEA [None]
  - PALPITATIONS [None]
  - TREATMENT NONCOMPLIANCE [None]
